FAERS Safety Report 8366740-7 (Version None)
Quarter: 2012Q1

REPORT INFORMATION
  Report Type: 
  Country: None (occurrence: None)
  Receive Date: 20120323
  Receipt Date: 20110422
  Transmission Date: 20120608
  Serious: Yes (Other)
  Sender: FDA-Public Use
  Company Number: 163-21880-11041275

PATIENT
  Age: 73 Year
  Sex: Female
  Weight: 78 kg

DRUGS (3)
  1. REVLIMID [Suspect]
     Indication: MULTIPLE MYELOMA
     Dosage: 25 MG, 1 IN 1 D, PO, 25-15MG, DAILY, PO, 25 MG, DAILY FOR 14 DAYS THEN OFF 7 DAYS, PO
     Route: 048
     Dates: start: 20090301, end: 20090101
  2. REVLIMID [Suspect]
     Indication: MULTIPLE MYELOMA
     Dosage: 25 MG, 1 IN 1 D, PO, 25-15MG, DAILY, PO, 25 MG, DAILY FOR 14 DAYS THEN OFF 7 DAYS, PO
     Route: 048
     Dates: start: 20110316
  3. REVLIMID [Suspect]
     Indication: MULTIPLE MYELOMA
     Dosage: 25 MG, 1 IN 1 D, PO, 25-15MG, DAILY, PO, 25 MG, DAILY FOR 14 DAYS THEN OFF 7 DAYS, PO
     Route: 048
     Dates: start: 20081215, end: 20090101

REACTIONS (2)
  - DRUG INEFFECTIVE [None]
  - DISEASE PROGRESSION [None]
